FAERS Safety Report 13556092 (Version 1)
Quarter: 2017Q2

REPORT INFORMATION
  Report Type: Spontaneous
  Country: US (occurrence: US)
  Receive Date: 20170517
  Receipt Date: 20170517
  Transmission Date: 20170830
  Serious: No
  Sender: FDA-Public Use
  Company Number: US-SA-2016SA201867

PATIENT
  Age: 69 Year
  Sex: Female

DRUGS (4)
  1. TOUJEO [Suspect]
     Active Substance: INSULIN GLARGINE
     Indication: DIABETES MELLITUS
     Dosage: DOSE:28 U AM AND 38 U PM
     Route: 065
     Dates: start: 201608
  2. SOLOSTAR [Concomitant]
     Active Substance: DEVICE
     Dates: start: 201608
  3. SOLOSTAR [Concomitant]
     Active Substance: DEVICE
  4. TOUJEO [Suspect]
     Active Substance: INSULIN GLARGINE
     Indication: DIABETES MELLITUS
     Dosage: DOSE: 50 UNITS AM AND 55 UNITS PM
     Route: 065

REACTIONS (1)
  - Off label use [Unknown]
